FAERS Safety Report 5158880-0 (Version None)
Quarter: 2006Q4

REPORT INFORMATION
  Report Type: 
  Country: None (occurrence: None)
  Receive Date: 20061117
  Receipt Date: 20061109
  Transmission Date: 20070319
  Serious: Yes (Other)
  Sender: FDA-Public Use
  Company Number: 2006138713

PATIENT
  Sex: Female

DRUGS (11)
  1. LIPITOR [Suspect]
     Indication: BLOOD CHOLESTEROL
     Dosage: (10 MG, DAILY)
     Dates: start: 20000101
  2. BAYCOL [Suspect]
  3. ZOCOR [Suspect]
  4. ZETIA [Suspect]
  5. INSULIN (INSULIN) [Concomitant]
  6. PREDNISONE TAB [Concomitant]
  7. IMURAN [Concomitant]
  8. ALPHAGAN [Concomitant]
  9. MULTI-VITAMINS [Concomitant]
  10. OMEGA 3 (FISH OIL) [Concomitant]
  11. B COMPLEX (NICOTINAMIDE, PYRIDOXINE HYDROCHLORIDE, RIBOFLAVIN, THIAMIN [Concomitant]

REACTIONS (6)
  - CARDIAC DISORDER [None]
  - DRUG INEFFECTIVE [None]
  - DRUG INTOLERANCE [None]
  - LIVER DISORDER [None]
  - MUSCLE DISORDER [None]
  - MYALGIA [None]
